FAERS Safety Report 6458767-7 (Version None)
Quarter: 2009Q4

REPORT INFORMATION
  Report Type: 
  Country: None (occurrence: None)
  Receive Date: 20091127
  Receipt Date: 20091119
  Transmission Date: 20100525
  Serious: Yes (Hospitalization)
  Sender: FDA-Public Use
  Company Number: IL-ROCHE-669970

PATIENT
  Age: 62 Year
  Sex: Female
  Weight: 70 kg

DRUGS (4)
  1. TAMIFLU [Suspect]
     Indication: H1N1 INFLUENZA
     Route: 048
     Dates: start: 20091111
  2. COUMADIN [Concomitant]
     Indication: ANTIPHOSPHOLIPID SYNDROME
     Dates: start: 20000101
  3. PREDNISONE TAB [Concomitant]
     Dosage: FREQUENCY REPORTED AS: QD (EVERY DAY).
  4. ASPIRIN [Concomitant]
     Dates: start: 20000101

REACTIONS (2)
  - COAGULOPATHY [None]
  - PNEUMONIA [None]
